FAERS Safety Report 16092373 (Version 3)
Quarter: 2019Q3

REPORT INFORMATION
  Report Type: Report from Study
  Country: US (occurrence: US)
  Receive Date: 20190319
  Receipt Date: 20190904
  Transmission Date: 20191004
  Serious: Yes (Hospitalization)
  Sender: FDA-Public Use
  Company Number: US-ACTELION-A-NJ2018-169201

PATIENT
  Age: 79 Year
  Sex: Female

DRUGS (16)
  1. FLECAINIDE [Suspect]
     Active Substance: FLECAINIDE
     Dosage: 150 MG, UNK
     Route: 065
  2. BREO ELLIPTA [Concomitant]
     Active Substance: FLUTICASONE FUROATE\VILANTEROL TRIFENATATE
     Dosage: 200 - 25
     Dates: start: 20180524
  3. COUMADIN [Concomitant]
     Active Substance: WARFARIN SODIUM
     Dosage: 2.5 MG, UNK
     Dates: start: 20180524
  4. ATENOLOL. [Concomitant]
     Active Substance: ATENOLOL
     Dosage: 25 MG, UNK
     Dates: start: 20180403
  5. FLECAINIDE [Suspect]
     Active Substance: FLECAINIDE
     Indication: PRODUCT USED FOR UNKNOWN INDICATION
     Dosage: 100 MG, UNK
     Route: 065
     Dates: start: 20180524
  6. FLUCONAZOLE. [Concomitant]
     Active Substance: FLUCONAZOLE
  7. FOLIC ACID. [Concomitant]
     Active Substance: FOLIC ACID
     Dosage: 1 MG, UNK
     Dates: start: 20180403
  8. COZAAR [Suspect]
     Active Substance: LOSARTAN POTASSIUM
     Indication: PRODUCT USED FOR UNKNOWN INDICATION
     Route: 065
  9. ALLOPURINOL. [Concomitant]
     Active Substance: ALLOPURINOL
     Dosage: 100 MG, UNK
     Dates: start: 20180403
  10. COUMADIN [Concomitant]
     Active Substance: WARFARIN SODIUM
     Dosage: 5 MG, UNK
     Dates: start: 20180524
  11. OPSUMIT [Suspect]
     Active Substance: MACITENTAN
     Dosage: 10 MG, QD
     Route: 048
  12. TYLENOL [Concomitant]
     Active Substance: ACETAMINOPHEN
     Dosage: 500 MG, UNK
     Dates: start: 20180403
  13. OPSUMIT [Suspect]
     Active Substance: MACITENTAN
     Indication: PULMONARY HYPERTENSION
     Dosage: 10 MG, QD
     Route: 048
     Dates: start: 20180223
  14. ADEMPAS [Concomitant]
     Active Substance: RIOCIGUAT
     Dosage: 0.5 MG, UNK
     Dates: start: 20180403
  15. PEPCID [Concomitant]
     Active Substance: FAMOTIDINE
     Dosage: 10 MG
     Route: 048
  16. VITAMIN D3 [Concomitant]
     Active Substance: CHOLECALCIFEROL
     Dosage: 2000 U, UNK
     Dates: start: 20180524

REACTIONS (11)
  - Anaemia [Recovering/Resolving]
  - Pancreatic mass [Unknown]
  - Fatigue [Recovering/Resolving]
  - Hypotension [Not Recovered/Not Resolved]
  - Oedema peripheral [Recovering/Resolving]
  - Dizziness [Not Recovered/Not Resolved]
  - Product dose omission [Not Recovered/Not Resolved]
  - Alopecia [Unknown]
  - Swelling [Recovering/Resolving]
  - Benign tumour excision [Unknown]
  - Pleural effusion [Recovering/Resolving]

NARRATIVE: CASE EVENT DATE: 20180830
